FAERS Safety Report 8007910-7 (Version None)
Quarter: 2011Q4

REPORT INFORMATION
  Report Type: 
  Country: None (occurrence: None)
  Receive Date: 20111206
  Receipt Date: 20111123
  Transmission Date: 20120403
  Serious: Yes (Hospitalization, Other)
  Sender: FDA-Public Use
  Company Number: 003-069

PATIENT
  Age: 42 Year
  Sex: Male

DRUGS (3)
  1. GLUCOSAMINE [Concomitant]
  2. CROFAB [Suspect]
     Indication: SNAKE BITE
     Dosage: 13 VIALS TOTAL
     Dates: start: 20111117, end: 20111118
  3. ATENOLOL [Concomitant]

REACTIONS (14)
  - PAIN [None]
  - RENAL FAILURE [None]
  - BLOOD FIBRINOGEN DECREASED [None]
  - ERYTHEMA [None]
  - INTERNATIONAL NORMALISED RATIO INCREASED [None]
  - BLOOD FIBRINOGEN INCREASED [None]
  - OEDEMA PERIPHERAL [None]
  - PROTHROMBIN TIME PROLONGED [None]
  - CONDITION AGGRAVATED [None]
  - PROTHROMBIN TIME SHORTENED [None]
  - DIALYSIS [None]
  - SKIN NECROSIS [None]
  - VOMITING [None]
  - PLATELET COUNT DECREASED [None]
